FAERS Safety Report 23671330 (Version 1)
Quarter: 2024Q1

REPORT INFORMATION
  Report Type: Spontaneous
  Country: GB (occurrence: GB)
  Receive Date: 20240326
  Receipt Date: 20240326
  Transmission Date: 20240410
  Serious: Yes (Other)
  Sender: FDA-Public Use
  Company Number: None

PATIENT
  Age: 84 Year
  Sex: Female

DRUGS (13)
  1. OMEPRAZOLE [Suspect]
     Active Substance: OMEPRAZOLE
     Route: 065
  2. PREGABALIN [Concomitant]
     Active Substance: PREGABALIN
     Dosage: TIME INTERVAL: 0.33333333 DAYS
  3. THIAMINE [Concomitant]
     Active Substance: THIAMINE
     Dosage: TIME INTERVAL: 0.33333333 DAYS
  4. FUROSEMIDE [Concomitant]
     Active Substance: FUROSEMIDE
     Dosage: ONE TO BE TAKEN ALTERNATE MORNING, CHEMIST SAY ONCE DAILY. SUSPENDED BY OGS LOW SODIUM.
  5. MINERAL OIL\PETROLATUM\WAX, EMULSIFYING [Concomitant]
     Active Substance: MINERAL OIL\PETROLATUM\WAX, EMULSIFYING
     Dosage: TIME INTERVAL: 0.33333333 DAYS
  6. FERROUS SULFATE [Concomitant]
     Active Substance: FERROUS SULFATE
     Dosage: NO LONGER TAKING,
  7. SANDO-K [Concomitant]
     Dosage: ACUTE
  8. SPIRONOLACTONE [Concomitant]
     Active Substance: SPIRONOLACTONE
     Dosage: STOPPED DUE TO LOW SODIUM; NA NORMAL RESUMED (BILATERAL LEG SWELLING),
  9. COMIRNATY ORIGINAL/OMICRON BA.4/5 [Concomitant]
     Dosage: 5 MICROGRAMS /15 MICROGRAMS / 0.3 ML DOSE DISPERSION FOR INJECTION MULTIDOSE VIALS,
     Dates: start: 20230522, end: 20230522
  10. FAMOTIDINE [Concomitant]
     Active Substance: FAMOTIDINE
     Indication: Gastrointestinal haemorrhage
     Dosage: FOR 4/52 THEN GP REVIEW TO STEP DOWN. SWITCHED FROM OMEPRAZOLE,
  11. CALAMINE [Concomitant]
     Active Substance: CALAMINE\FERRIC OXIDE RED\ZINC OXIDE
  12. LACTULOSE [Concomitant]
     Active Substance: LACTULOSE
     Dosage: 3.1 - 3.7G / 5 ML,
  13. CARVEDILOL [Concomitant]
     Active Substance: CARVEDILOL

REACTIONS (1)
  - Femoral neck fracture [Unknown]
